FAERS Safety Report 8219725-5 (Version None)
Quarter: 2012Q1

REPORT INFORMATION
  Report Type: 
  Country: None (occurrence: None)
  Receive Date: 20120319
  Receipt Date: 20120309
  Transmission Date: 20120608
  Serious: Yes (Hospitalization)
  Sender: FDA-Public Use
  Company Number: US-ASTRAZENECA-2012SE03373

PATIENT
  Age: 60 Year
  Sex: Female

DRUGS (1)
  1. NEXIUM [Suspect]
     Route: 048

REACTIONS (5)
  - DRUG DOSE OMISSION [None]
  - MALAISE [None]
  - MUSCLE ATROPHY [None]
  - HIATUS HERNIA [None]
  - APHAGIA [None]
